FAERS Safety Report 11729432 (Version 1)
Quarter: 2015Q4

REPORT INFORMATION
  Report Type: Spontaneous
  Country: US (occurrence: US)
  Receive Date: 20151112
  Receipt Date: 20151112
  Transmission Date: 20160304
  Serious: Yes (Other)
  Sender: FDA-Public Use
  Company Number: US-TEVA-607678USA

PATIENT
  Sex: Female

DRUGS (11)
  1. PROVIGIL [Suspect]
     Active Substance: MODAFINIL
     Route: 065
  2. VITAMIN D [Concomitant]
     Active Substance: CHOLECALCIFEROL
  3. PREVACID [Concomitant]
     Active Substance: LANSOPRAZOLE
  4. NUVIGIL [Suspect]
     Active Substance: ARMODAFINIL
     Route: 065
  5. SYNTHROID [Concomitant]
     Active Substance: LEVOTHYROXINE SODIUM
  6. XYREM [Suspect]
     Active Substance: SODIUM OXYBATE
     Dosage: 9 GRAM DAILY;
     Dates: start: 201302
  7. XANAX [Concomitant]
     Active Substance: ALPRAZOLAM
  8. WELLBUTRIN SR [Suspect]
     Active Substance: BUPROPION HYDROCHLORIDE
     Indication: ANXIETY
     Route: 065
     Dates: start: 201404
  9. ZOLOFT [Concomitant]
     Active Substance: SERTRALINE HYDROCHLORIDE
  10. SERTRALINE [Concomitant]
     Active Substance: SERTRALINE HYDROCHLORIDE
  11. XYREM [Suspect]
     Active Substance: SODIUM OXYBATE
     Indication: NARCOLEPSY
     Dosage: 3 GRAM DAILY;
     Route: 065
     Dates: start: 201504

REACTIONS (5)
  - Systolic hypertension [Unknown]
  - Blood pressure increased [Unknown]
  - Headache [Unknown]
  - Myalgia [Recovering/Resolving]
  - Nausea [Unknown]
